FAERS Safety Report 5041207-2 (Version None)
Quarter: 2006Q3

REPORT INFORMATION
  Report Type: 
  Country: None (occurrence: None)
  Receive Date: 20060703
  Receipt Date: 20060325
  Transmission Date: 20061208
  Serious: Yes (Other)
  Sender: FDA-Public Use
  Company Number: 109382ISR

PATIENT
  Age: 57 Year
  Sex: Female

DRUGS (2)
  1. LAMOTRIGINE [Suspect]
     Indication: CONVULSION
     Dosage: 75MG PER DAY
     Route: 065
  2. VALPROIC ACID [Suspect]
     Indication: CONVULSION
     Dosage: 700MG PER DAY
     Route: 065

REACTIONS (5)
  - CYANOSIS [None]
  - DRUG INTERACTION [None]
  - DYSPNOEA [None]
  - INTERSTITIAL LUNG DISEASE [None]
  - TACHYCARDIA [None]
